FAERS Safety Report 6370838-2 (Version None)
Quarter: 2009Q3

REPORT INFORMATION
  Report Type: 
  Country: None (occurrence: None)
  Receive Date: 20090923
  Receipt Date: 20070703
  Transmission Date: 20100115
  Serious: Yes (Other)
  Sender: FDA-Public Use
  Company Number: US-ASTRAZENECA-2006UW24501

PATIENT
  Age: 20325 Day
  Sex: Female
  Weight: 120.7 kg

DRUGS (36)
  1. SEROQUEL [Suspect]
     Indication: BIPOLAR I DISORDER
     Dosage: 100 MG, 400 MG
     Route: 048
     Dates: start: 20030403, end: 20061101
  2. SEROQUEL [Suspect]
     Indication: SCHIZOPHRENIA
     Dosage: 100 MG, 400 MG
     Route: 048
     Dates: start: 20030403, end: 20061101
  3. SEROQUEL [Suspect]
     Indication: BIPOLAR DISORDER
     Dosage: 100 MG, 400 MG
     Route: 048
     Dates: start: 20030403, end: 20061101
  4. SEROQUEL [Suspect]
     Indication: SLEEP DISORDER
     Dosage: 100 MG, 400 MG
     Route: 048
     Dates: start: 20030403, end: 20061101
  5. SEROQUEL [Suspect]
     Dosage: 100-400 MG
     Route: 048
     Dates: start: 20030403, end: 20030501
  6. SEROQUEL [Suspect]
     Dosage: 100-400 MG
     Route: 048
     Dates: start: 20030403, end: 20030501
  7. SEROQUEL [Suspect]
     Dosage: 100-400 MG
     Route: 048
     Dates: start: 20030403, end: 20030501
  8. SEROQUEL [Suspect]
     Dosage: 100-400 MG
     Route: 048
     Dates: start: 20030403, end: 20030501
  9. SEROQUEL [Suspect]
     Route: 048
     Dates: start: 20030701, end: 20040301
  10. SEROQUEL [Suspect]
     Route: 048
     Dates: start: 20030701, end: 20040301
  11. SEROQUEL [Suspect]
     Route: 048
     Dates: start: 20030701, end: 20040301
  12. SEROQUEL [Suspect]
     Route: 048
     Dates: start: 20030701, end: 20040301
  13. SEROQUEL [Suspect]
     Route: 048
     Dates: start: 20050301
  14. SEROQUEL [Suspect]
     Route: 048
     Dates: start: 20050301
  15. SEROQUEL [Suspect]
     Route: 048
     Dates: start: 20050301
  16. SEROQUEL [Suspect]
     Route: 048
     Dates: start: 20050301
  17. ZYPREXA [Concomitant]
     Dosage: 10-20 MG
     Route: 048
     Dates: start: 20040301
  18. LITHIUM [Concomitant]
     Dates: start: 20040301
  19. FEN PHEN [Concomitant]
     Dates: start: 19960702, end: 19970302
  20. ZANTAC [Concomitant]
     Indication: GASTROOESOPHAGEAL REFLUX DISEASE
     Dosage: 150-300 MG
     Route: 048
     Dates: start: 19960904
  21. SERZONE [Concomitant]
     Indication: DEPRESSION
     Dosage: 50-100 MG
     Route: 048
     Dates: start: 19990907
  22. SERZONE [Concomitant]
     Indication: ANXIETY
     Dosage: 50-100 MG
     Route: 048
     Dates: start: 19990907
  23. ALBUTEROL [Concomitant]
     Indication: ASTHMA
     Route: 055
     Dates: start: 20000303
  24. ZOLOFT [Concomitant]
     Indication: DEPRESSION
     Dosage: 25-50 MG
     Route: 048
     Dates: start: 20000322
  25. SINGULAIR [Concomitant]
     Indication: ASTHMA
     Route: 048
     Dates: start: 20010302
  26. MECLIZINE HCL [Concomitant]
     Indication: DIZZINESS
     Route: 048
     Dates: start: 20010701
  27. RHINOCORT [Concomitant]
     Indication: CHRONIC SINUSITIS
     Route: 055
     Dates: start: 20010920
  28. ADVAIR DISKUS 100/50 [Concomitant]
     Indication: ASTHMA
     Dosage: 500/50
     Route: 055
     Dates: start: 20020701
  29. IBUPROFEN [Concomitant]
     Indication: ARTHRITIS
     Route: 048
     Dates: start: 20020701
  30. PAXIL CR [Concomitant]
     Route: 048
     Dates: start: 20030506
  31. KLONOPIN [Concomitant]
     Route: 048
     Dates: start: 20030506
  32. AMBIEN [Concomitant]
     Route: 048
     Dates: start: 20030501
  33. METFORMIN HCL [Concomitant]
     Route: 048
     Dates: start: 20040301
  34. GLIPIZIDE [Concomitant]
     Indication: DIABETES MELLITUS
     Route: 048
     Dates: start: 20040301
  35. LORAZEPAM [Concomitant]
     Route: 048
     Dates: start: 20040214
  36. LITHOBID [Concomitant]
     Indication: MANIA
     Route: 048
     Dates: start: 20040302

REACTIONS (4)
  - BLOOD CHOLESTEROL INCREASED [None]
  - DIABETES MELLITUS [None]
  - DIABETIC KETOACIDOSIS [None]
  - TYPE 2 DIABETES MELLITUS [None]
